FAERS Safety Report 17115732 (Version 1)
Quarter: 2019Q4

REPORT INFORMATION
  Report Type: Spontaneous
  Country: US (occurrence: US)
  Receive Date: 20191112
  Receipt Date: 20191112
  Transmission Date: 20200122
  Serious: Yes (Hospitalization)
  Sender: FDA-Public Use
  Company Number: None

PATIENT
  Age: 64 Year
  Sex: Male
  Weight: 90 kg

DRUGS (2)
  1. MELOXICAM. [Suspect]
     Active Substance: MELOXICAM
     Route: 048
     Dates: end: 20190925
  2. ASPIRIN. [Suspect]
     Active Substance: ASPIRIN
     Route: 008
     Dates: end: 20190925

REACTIONS (1)
  - Cerebral haematoma [None]

NARRATIVE: CASE EVENT DATE: 20190924
